FAERS Safety Report 7731591-0 (Version None)
Quarter: 2011Q3

REPORT INFORMATION
  Report Type: 
  Country: None (occurrence: None)
  Receive Date: 20110906
  Receipt Date: 20110601
  Transmission Date: 20111222
  Serious: No
  Sender: FDA-Public Use
  Company Number: US-AMGEN-USASP2011028396

PATIENT
  Age: 69 Year
  Sex: Female

DRUGS (10)
  1. VITAMIN D [Concomitant]
  2. PREDNISONE [Concomitant]
  3. PROLIA [Suspect]
     Indication: OSTEOPOROSIS
     Dosage: 60 MG, Q3MO
     Route: 058
     Dates: start: 20101101
  4. XANAX [Concomitant]
  5. VITAMIN E                          /00110501/ [Concomitant]
  6. VITAMIN D [Concomitant]
  7. ULTRAM [Concomitant]
  8. CALCIUM CARBONATE [Concomitant]
  9. PROLIA [Suspect]
     Indication: RHEUMATOID ARTHRITIS
  10. PRILOSEC [Concomitant]

REACTIONS (7)
  - BURNING SENSATION [None]
  - MOBILITY DECREASED [None]
  - BONE PAIN [None]
  - MYALGIA [None]
  - THERAPEUTIC RESPONSE DECREASED [None]
  - DRUG INEFFECTIVE [None]
  - PAIN [None]
